FAERS Safety Report 9421846 (Version 2)
Quarter: 2013Q3

REPORT INFORMATION
  Report Type: Report from Study
  Country: US (occurrence: US)
  Receive Date: 20130726
  Receipt Date: 20130808
  Transmission Date: 20140515
  Serious: Yes (Death, Hospitalization, Other)
  Sender: FDA-Public Use
  Company Number: PHEH2013US015801

PATIENT
  Age: 76 Year
  Sex: Female
  Weight: 76.64 kg

DRUGS (2)
  1. GLEEVEC [Suspect]
     Indication: CHRONIC MYELOID LEUKAEMIA
     Dosage: 400 MG, DAILY
     Route: 048
     Dates: start: 20130604, end: 20130624
  2. GLEEVEC [Suspect]
     Dosage: UKN
     Route: 048

REACTIONS (7)
  - Myocardial infarction [Fatal]
  - Blood disorder [Unknown]
  - Peripheral vascular disorder [Unknown]
  - General physical health deterioration [Unknown]
  - Condition aggravated [Unknown]
  - Peripheral ischaemia [Unknown]
  - Drug intolerance [Unknown]
